FAERS Safety Report 6984100-8 (Version None)
Quarter: 2010Q3

REPORT INFORMATION
  Report Type: 
  Country: None (occurrence: None)
  Receive Date: 20100915
  Receipt Date: 20090526
  Transmission Date: 20110219
  Serious: No
  Sender: FDA-Public Use
  Company Number: US-WYE-H09483909

PATIENT
  Age: 23 Year
  Sex: Female

DRUGS (3)
  1. PRISTIQ [Suspect]
     Indication: DEPRESSION
     Route: 048
     Dates: start: 20090401
  2. PRISTIQ [Suspect]
     Indication: ANXIETY
  3. XANAX [Concomitant]

REACTIONS (7)
  - ABNORMAL DREAMS [None]
  - ALOPECIA [None]
  - CONSTIPATION [None]
  - DIZZINESS [None]
  - DRUG WITHDRAWAL SYNDROME [None]
  - POOR QUALITY SLEEP [None]
  - SEXUAL DYSFUNCTION [None]
